FAERS Safety Report 25397043 (Version 1)
Quarter: 2025Q2

REPORT INFORMATION
  Report Type: Spontaneous
  Country: CN (occurrence: CN)
  Receive Date: 20250604
  Receipt Date: 20250604
  Transmission Date: 20250717
  Serious: Yes (Other)
  Sender: MYLAN
  Company Number: CN-MYLANLABS-2025M1046451

PATIENT
  Sex: Male

DRUGS (4)
  1. VIAGRA [Suspect]
     Active Substance: SILDENAFIL CITRATE
     Indication: Product used for unknown indication
  2. VIAGRA [Suspect]
     Active Substance: SILDENAFIL CITRATE
     Route: 065
  3. VIAGRA [Suspect]
     Active Substance: SILDENAFIL CITRATE
     Route: 065
  4. VIAGRA [Suspect]
     Active Substance: SILDENAFIL CITRATE

REACTIONS (3)
  - Erectile dysfunction [Unknown]
  - Feeling of body temperature change [Unknown]
  - Dizziness [Unknown]
